FAERS Safety Report 12294729 (Version 1)
Quarter: 2016Q2

REPORT INFORMATION
  Report Type: Report from Study
  Country: BR (occurrence: BR)
  Receive Date: 20160422
  Receipt Date: 20160422
  Transmission Date: 20160815
  Serious: Yes (Other)
  Sender: FDA-Public Use
  Company Number: PHHY2016BR042147

PATIENT
  Sex: Female
  Weight: 55.6 kg

DRUGS (4)
  1. ALENIA [Concomitant]
     Active Substance: BUDESONIDE\FORMOTEROL FUMARATE
     Indication: EMPHYSEMA
     Dosage: 1 DF (12/400 MCG), QD
     Route: 055
  2. ONBREZ BREEZHALER [Suspect]
     Active Substance: INDACATEROL
     Indication: EMPHYSEMA
     Dosage: 300 UG, QD
     Route: 055
  3. ONBREZ BREEZHALER [Suspect]
     Active Substance: INDACATEROL
     Dosage: 150 UG, QD
     Route: 055
  4. SPIRIVA [Concomitant]
     Active Substance: TIOTROPIUM BROMIDE MONOHYDRATE
     Indication: EMPHYSEMA
     Dosage: 1 DF (2.5/12 UG), QD IN THE MORNING
     Route: 065

REACTIONS (11)
  - Pneumonia [Unknown]
  - Breast mass [Recovered/Resolved]
  - Mobility decreased [Unknown]
  - Viral infection [Recovering/Resolving]
  - Invasive breast carcinoma [Recovered/Resolved]
  - Dyspnoea [Unknown]
  - Speech disorder [Unknown]
  - Pharyngeal disorder [Unknown]
  - Anxiety [Unknown]
  - Abasia [Unknown]
  - Emphysema [Recovering/Resolving]

NARRATIVE: CASE EVENT DATE: 2015
